FAERS Safety Report 6164857-9 (Version None)
Quarter: 2009Q2

REPORT INFORMATION
  Report Type: 
  Country: None (occurrence: None)
  Receive Date: 20090423
  Receipt Date: 20090416
  Transmission Date: 20091009
  Serious: No
  Sender: FDA-Public Use
  Company Number: US-B.I. PHARMACEUTICALS,INC./RIDGEFIELD-2009-BP-04833BP

PATIENT
  Age: 39 Year
  Sex: Female

DRUGS (3)
  1. MOBIC [Suspect]
     Indication: TEMPOROMANDIBULAR JOINT SYNDROME
     Route: 048
     Dates: start: 20090414
  2. BIRTH CONTROL [Concomitant]
     Indication: CONTRACEPTION
  3. EFFEXOR [Concomitant]
     Indication: PREMENSTRUAL SYNDROME

REACTIONS (2)
  - ARTHRALGIA [None]
  - RASH [None]
